FAERS Safety Report 8817100 (Version 1)
Quarter: 2012Q4

REPORT INFORMATION
  Report Type: Spontaneous
  Country: US (occurrence: None)
  Receive Date: 20121003
  Receipt Date: 20121003
  Transmission Date: 20130627
  Serious: Yes (Other)
  Sender: FDA-Public Use
  Company Number: None

PATIENT
  Age: 66 Year
  Sex: Male
  Weight: 79.38 kg

DRUGS (1)
  1. ZOCOR [Suspect]
     Indication: HIGH CHOLESTEROL
     Dates: start: 20090419, end: 20111019

REACTIONS (4)
  - Myalgia [None]
  - Muscle rupture [None]
  - Asthenia [None]
  - Tremor [None]
